FAERS Safety Report 6006727-2 (Version None)
Quarter: 2008Q4

REPORT INFORMATION
  Report Type: 
  Country: None (occurrence: None)
  Receive Date: 20081217
  Receipt Date: 20081205
  Transmission Date: 20090506
  Serious: Yes (Hospitalization, Other)
  Sender: FDA-Public Use
  Company Number: US-WYE-H07110408

PATIENT
  Sex: Female
  Weight: 63.56 kg

DRUGS (11)
  1. PRISTIQ [Suspect]
     Indication: DEPRESSION
     Route: 048
     Dates: start: 20081112
  2. SINGULAIR [Concomitant]
     Dosage: UNKNOWN
     Route: 048
  3. VITAMINS [Concomitant]
     Dosage: UNKNOWN
     Route: 048
  4. CYMBALTA [Suspect]
     Dosage: UNKNOWN
     Dates: end: 20081108
  5. AMBIEN [Suspect]
     Dosage: ^5 TABLETS^, OVERDOSE AMOUNT
     Route: 048
     Dates: start: 20081118, end: 20081118
  6. SOMINEX [Suspect]
     Dosage: OVERDOSE AMOUNT UNKNOWN
     Route: 048
     Dates: start: 20081118, end: 20081118
  7. ATARAX [Suspect]
     Dosage: ^4 TABLETS^, OVERDOSE AMOUNT
     Route: 048
     Dates: start: 20081118, end: 20081118
  8. CONCERTA [Concomitant]
  9. CLARITIN-D [Concomitant]
     Dosage: UNKNOWN
     Route: 048
  10. XANAX [Suspect]
     Dosage: UNKNOWN
     Route: 048
  11. XANAX [Suspect]
     Dosage: ^3 TABLETS^, OVERDOSE AMOUNT
     Route: 048
     Dates: start: 20081118, end: 20081118

REACTIONS (13)
  - BLOOD TRIGLYCERIDES INCREASED [None]
  - CHILLS [None]
  - CONSTIPATION [None]
  - DIZZINESS [None]
  - DRY MOUTH [None]
  - HEART RATE INCREASED [None]
  - INTENTIONAL OVERDOSE [None]
  - NAUSEA [None]
  - PSYCHIATRIC SYMPTOM [None]
  - SEROTONIN SYNDROME [None]
  - SOMNOLENCE [None]
  - SUICIDAL IDEATION [None]
  - SUICIDE ATTEMPT [None]
